FAERS Safety Report 17767184 (Version 1)
Quarter: 2020Q2

REPORT INFORMATION
  Report Type: Report from Study
  Country: US (occurrence: US)
  Receive Date: 20200511
  Receipt Date: 20200511
  Transmission Date: 20200714
  Serious: Yes (Hospitalization)
  Sender: FDA-Public Use
  Company Number: US-TEVA-2020-US-1233555

PATIENT
  Age: 58 Year
  Sex: Male

DRUGS (8)
  1. CYTARABINE. [Suspect]
     Active Substance: CYTARABINE
     Indication: ACUTE MYELOID LEUKAEMIA
     Dosage: 190 MILLIGRAM DAILY;
     Route: 042
     Dates: start: 20190516, end: 20190522
  2. CYTARABINE. [Suspect]
     Active Substance: CYTARABINE
     Dosage: EVERY 12 HOURS
     Route: 042
     Dates: start: 20190724, end: 20190728
  3. IDARUBICIN [Suspect]
     Active Substance: IDARUBICIN
     Indication: ACUTE MYELOID LEUKAEMIA
     Route: 042
  4. CYTARABINE. [Suspect]
     Active Substance: CYTARABINE
     Dosage: EVERY 12 HOURS
     Route: 042
     Dates: start: 20190626, end: 20190630
  5. ASP2215 [Suspect]
     Active Substance: GILTERITINIB
     Indication: ACUTE MYELOID LEUKAEMIA
     Dosage: 120 MILLIGRAM DAILY;
     Route: 048
     Dates: start: 20190523
  6. CYTARABINE. [Suspect]
     Active Substance: CYTARABINE
     Dosage: EVERY 12 HOURS
     Route: 042
     Dates: start: 20190819, end: 20190824
  7. ASP2215 [Suspect]
     Active Substance: GILTERITINIB
     Dosage: 120 MILLIGRAM DAILY;
     Route: 048
     Dates: start: 20190626
  8. ASP2215 [Suspect]
     Active Substance: GILTERITINIB
     Dosage: 120 MILLIGRAM DAILY;
     Route: 048
     Dates: start: 20190824

REACTIONS (1)
  - Febrile neutropenia [Recovered/Resolved]

NARRATIVE: CASE EVENT DATE: 20190711
